FAERS Safety Report 8828408 (Version 1)
Quarter: 2012Q4

REPORT INFORMATION
  Report Type: 
  Country: US (occurrence: US)
  Receive Date: 20121005
  Receipt Date: 20121005
  Transmission Date: 20130627
  Serious: No
  Sender: FDA-Public Use
  Company Number: US-BIOGENIDEC-2012BI041143

PATIENT
  Sex: Female

DRUGS (1)
  1. TYSABRI [Suspect]
     Indication: MULTIPLE SCLEROSIS
     Route: 042
     Dates: start: 20101021

REACTIONS (3)
  - Rib fracture [Recovered/Resolved]
  - Depression [Recovered/Resolved]
  - Obsessive-compulsive disorder [Recovered/Resolved]
